FAERS Safety Report 9638995 (Version 2)
Quarter: 2013Q4

REPORT INFORMATION
  Report Type: Spontaneous
  Country: DE (occurrence: None)
  Receive Date: 20131018
  Receipt Date: 20131030
  Transmission Date: 20140711
  Serious: Yes (Other)
  Sender: FDA-Public Use
  Company Number: 1310-1295

PATIENT
  Age: 91 Year
  Sex: 0

DRUGS (1)
  1. EYLEA [Suspect]
     Indication: PRE-EXISTING CONDITION IMPROVED
     Dosage: 1 IN 4 WK

REACTIONS (1)
  - Eye haemorrhage [None]
